FAERS Safety Report 6556936-9 (Version None)
Quarter: 2010Q1

REPORT INFORMATION
  Report Type: 
  Country: None (occurrence: None)
  Receive Date: 20100128
  Receipt Date: 20100121
  Transmission Date: 20100710
  Serious: Yes (Hospitalization, Other)
  Sender: FDA-Public Use
  Company Number: PHHO2010US00645

PATIENT
  Sex: Male
  Weight: 83.5 kg

DRUGS (7)
  1. ZOLEDRONATE T29581+SOLINF [Suspect]
     Indication: METASTASES TO BONE
     Dosage: 3MG, EVERY 28 DAYS
     Route: 042
     Dates: start: 20061227
  2. AVELOX [Suspect]
  3. PROTONIX [Suspect]
  4. VITAMIN D [Concomitant]
     Indication: METASTASES TO BONE
  5. CALCIUM [Concomitant]
     Indication: METASTASES TO BONE
  6. REGLAN [Concomitant]
  7. STEROIDS NOS [Concomitant]

REACTIONS (11)
  - ABDOMINAL PAIN UPPER [None]
  - CHEST PAIN [None]
  - CHRONIC OBSTRUCTIVE PULMONARY DISEASE [None]
  - DEHYDRATION [None]
  - DYSPNOEA [None]
  - DYSURIA [None]
  - ENCEPHALOPATHY [None]
  - HYPOXIA [None]
  - NAUSEA [None]
  - VOMITING [None]
  - WEIGHT DECREASED [None]
